FAERS Safety Report 20876617 (Version 2)
Quarter: 2022Q3

REPORT INFORMATION
  Report Type: Report from Study
  Country: ES (occurrence: ES)
  Receive Date: 20220526
  Receipt Date: 20220829
  Transmission Date: 20221027
  Serious: Yes (Hospitalization, Other)
  Sender: FDA-Public Use
  Company Number: ES-TAKEDA-2021TUS052274

PATIENT
  Age: 3 Year
  Sex: Female

DRUGS (23)
  1. TEDUGLUTIDE [Suspect]
     Active Substance: TEDUGLUTIDE
     Indication: Short-bowel syndrome
     Dosage: 0.4 MILLIGRAM, QD
     Route: 042
     Dates: start: 20190723, end: 20210707
  2. TEDUGLUTIDE [Suspect]
     Active Substance: TEDUGLUTIDE
     Indication: Short-bowel syndrome
     Dosage: 0.4 MILLIGRAM, QD
     Route: 042
     Dates: start: 20190723, end: 20210707
  3. TEDUGLUTIDE [Suspect]
     Active Substance: TEDUGLUTIDE
     Indication: Short-bowel syndrome
     Dosage: 0.4 MILLIGRAM, QD
     Route: 042
     Dates: start: 20190723, end: 20210707
  4. TEDUGLUTIDE [Suspect]
     Active Substance: TEDUGLUTIDE
     Indication: Short-bowel syndrome
     Dosage: 0.4 MILLIGRAM, QD
     Route: 042
     Dates: start: 20190723, end: 20210707
  5. TEDUGLUTIDE [Suspect]
     Active Substance: TEDUGLUTIDE
     Dosage: 0.7 MILLIGRAM, QD
     Route: 042
     Dates: start: 20210707, end: 202108
  6. TEDUGLUTIDE [Suspect]
     Active Substance: TEDUGLUTIDE
     Dosage: 0.7 MILLIGRAM, QD
     Route: 042
     Dates: start: 20210707, end: 202108
  7. TEDUGLUTIDE [Suspect]
     Active Substance: TEDUGLUTIDE
     Dosage: 0.7 MILLIGRAM, QD
     Route: 042
     Dates: start: 20210707, end: 202108
  8. TEDUGLUTIDE [Suspect]
     Active Substance: TEDUGLUTIDE
     Dosage: 0.7 MILLIGRAM, QD
     Route: 042
     Dates: start: 20210707, end: 202108
  9. TEDUGLUTIDE [Suspect]
     Active Substance: TEDUGLUTIDE
     Dosage: 0.7 MILLIGRAM, QD
     Route: 042
     Dates: start: 20210817
  10. TEDUGLUTIDE [Suspect]
     Active Substance: TEDUGLUTIDE
     Dosage: 0.7 MILLIGRAM, QD
     Route: 042
     Dates: start: 20210817
  11. TEDUGLUTIDE [Suspect]
     Active Substance: TEDUGLUTIDE
     Dosage: 0.7 MILLIGRAM, QD
     Route: 042
     Dates: start: 20210817
  12. TEDUGLUTIDE [Suspect]
     Active Substance: TEDUGLUTIDE
     Dosage: 0.7 MILLIGRAM, QD
     Route: 042
     Dates: start: 20210817
  13. SULFAMETHOXAZOLE\TRIMETHOPRIM [Concomitant]
     Active Substance: SULFAMETHOXAZOLE\TRIMETHOPRIM
     Indication: Bacterial infection
     Dosage: 20 MILLIGRAM, BID
     Route: 048
     Dates: start: 20191128, end: 202004
  14. METRONIDAZOLE [Concomitant]
     Active Substance: METRONIDAZOLE
     Indication: Bacterial infection
     Dosage: 62.50 MILLIGRAM, BID
     Route: 048
     Dates: start: 20191128, end: 202004
  15. VITAMIN D3 [Concomitant]
     Active Substance: CHOLECALCIFEROL
     Indication: Vitamin D deficiency
     Dosage: 400 INTERNATIONAL UNIT, QD
     Route: 048
     Dates: start: 2017
  16. HIBOR [Concomitant]
     Indication: Thrombosis
     Dosage: 1000 INTERNATIONAL UNIT, QD
     Route: 058
     Dates: start: 201808
  17. FERROGLYCINE SULFATE [Concomitant]
     Active Substance: FERROGLYCINE SULFATE
     Indication: Anaemia
     Dosage: 1 DROPS
     Route: 048
     Dates: start: 20200520
  18. RESINCOLESTIRAMINA [Concomitant]
     Indication: Diarrhoea
     Dosage: 1500 MILLIGRAM, BID
     Route: 048
     Dates: start: 20211022
  19. OMEPRAZOLE [Concomitant]
     Active Substance: OMEPRAZOLE
     Indication: Gastroenteritis
     Dosage: 12 MILLIGRAM
     Route: 048
     Dates: start: 20210705
  20. Glutaferro [Concomitant]
     Indication: Iron deficiency
     Dosage: 30 MILLIGRAM, QD
     Route: 048
     Dates: start: 20210705
  21. VITAMIN B12 [Concomitant]
     Active Substance: CYANOCOBALAMIN
     Indication: Vitamin B12 deficiency
     Dosage: 1 MILLIGRAM, 2/MONTH
     Route: 030
     Dates: start: 20210705, end: 20220203
  22. ACETAMINOPHEN [Concomitant]
     Active Substance: ACETAMINOPHEN
     Indication: Pyrexia
     Dosage: 120 MILLIGRAM, TID
     Route: 048
     Dates: start: 20210315, end: 202103
  23. AMOXICILLIN [Concomitant]
     Active Substance: AMOXICILLIN
     Indication: Respiratory tract infection
     Dosage: 150 MILLIGRAM, TID
     Route: 048
     Dates: start: 20190925, end: 20191005

REACTIONS (2)
  - Intestinal obstruction [Recovered/Resolved]
  - Rectal haemorrhage [Recovered/Resolved]

NARRATIVE: CASE EVENT DATE: 20210813
